FAERS Safety Report 8474439-1 (Version None)
Quarter: 2012Q2

REPORT INFORMATION
  Report Type: 
  Country: None (occurrence: None)
  Receive Date: 20120628
  Receipt Date: 20120622
  Transmission Date: 20120825
  Serious: Yes (Other)
  Sender: FDA-Public Use
  Company Number: PHFR2012GB002976

PATIENT
  Age: 52 Year
  Sex: Female
  Weight: 60 kg

DRUGS (4)
  1. TEGRETOL [Suspect]
     Indication: EPILEPSY
     Dosage: 600 MG, UNK
     Dates: start: 19870101, end: 19870401
  2. PHENOBARBITAL TAB [Concomitant]
     Dosage: 60 MG, UNK
  3. OSPOLOT [Concomitant]
  4. DIPROSONE [Concomitant]

REACTIONS (22)
  - CONTUSION [None]
  - TENDON PAIN [None]
  - DRY EYE [None]
  - ALOPECIA [None]
  - PRURITUS [None]
  - LIGAMENT PAIN [None]
  - MOUTH HAEMORRHAGE [None]
  - VISUAL IMPAIRMENT [None]
  - BONE PAIN [None]
  - MYALGIA [None]
  - EYE SWELLING [None]
  - HYPERSENSITIVITY [None]
  - SKIN EXFOLIATION [None]
  - PHOTOPHOBIA [None]
  - ANAPHYLACTIC SHOCK [None]
  - THYROID DISORDER [None]
  - MUSCLE SWELLING [None]
  - RASH GENERALISED [None]
  - ABDOMINAL PAIN UPPER [None]
  - DIPLOPIA [None]
  - EYE PAIN [None]
  - SKIN ATROPHY [None]
